FAERS Safety Report 8548806-1 (Version None)
Quarter: 2012Q3

REPORT INFORMATION
  Report Type: 
  Country: None (occurrence: None)
  Receive Date: 20120730
  Receipt Date: 20120720
  Transmission Date: 20120928
  Serious: Yes (Hospitalization)
  Sender: FDA-Public Use
  Company Number: US-US-EMD SERONO, INC.-7149440

PATIENT
  Sex: Female

DRUGS (2)
  1. REBIF [Suspect]
     Indication: MULTIPLE SCLEROSIS
     Route: 058
     Dates: start: 20120504
  2. COUMADIN [Concomitant]
     Indication: PULMONARY EMBOLISM
     Dates: start: 20110601

REACTIONS (4)
  - MULTIPLE SCLEROSIS RELAPSE [None]
  - HAEMATURIA [None]
  - INFLUENZA LIKE ILLNESS [None]
  - HAEMATOCHEZIA [None]
